FAERS Safety Report 9640411 (Version 1)
Quarter: 2013Q4

REPORT INFORMATION
  Report Type: Spontaneous
  Country: US (occurrence: None)
  Receive Date: 20131022
  Receipt Date: 20131022
  Transmission Date: 20140711
  Serious: Yes (Other)
  Sender: FDA-Public Use
  Company Number: None

PATIENT
  Age: 72 Year
  Sex: Female
  Weight: 73.48 kg

DRUGS (8)
  1. CYMBALTA 30MG TAKE BID [Suspect]
     Indication: DEPRESSION
     Route: 048
     Dates: start: 201301, end: 20130507
  2. CYMBALTA 30MG TAKE BID [Suspect]
     Indication: PAIN
     Route: 048
     Dates: start: 201301, end: 20130507
  3. THYROXINE [Concomitant]
  4. ASA [Concomitant]
  5. AMITRIPTYLINE [Concomitant]
  6. EFFEXOR [Concomitant]
  7. RANITIDINE [Concomitant]
  8. CELEBREX [Concomitant]

REACTIONS (4)
  - Glossodynia [None]
  - Tongue ulceration [None]
  - Oral pain [None]
  - No therapeutic response [None]
